FAERS Safety Report 9553339 (Version 4)
Quarter: 2015Q2

REPORT INFORMATION
  Report Type: Spontaneous
  Country: US (occurrence: None)
  Receive Date: 20130805
  Receipt Date: 20150420
  Transmission Date: 20150821
  Serious: Yes (Other)
  Sender: FDA-Public Use
  Company Number: AEGR000060

PATIENT
  Age: 47 Year
  Sex: Female
  Weight: 74.8 kg

DRUGS (10)
  1. NIASPAN (NICOTINIC ACID) [Concomitant]
  2. ALEVE (NAPROXEN SODIUM) [Concomitant]
  3. CLARITIN [Concomitant]
     Active Substance: LORATADINE
  4. ZANTAC [Concomitant]
     Active Substance: RANITIDINE HYDROCHLORIDE
  5. CRESTOR [Concomitant]
     Active Substance: ROSUVASTATIN CALCIUM
  6. CALCIUM (CALCIUM GLUCONATE) [Concomitant]
  7. JUXTAPID [Suspect]
     Active Substance: LOMITAPIDE MESYLATE
     Indication: TYPE IIA HYPERLIPIDAEMIA
     Route: 048
     Dates: start: 20130418, end: 20130612
  8. LIPITOR [Concomitant]
     Active Substance: ATORVASTATIN CALCIUM
  9. ZETIA [Concomitant]
     Active Substance: EZETIMIBE
  10. ASA (ASA) [Concomitant]

REACTIONS (2)
  - Aspartate aminotransferase increased [None]
  - Alanine aminotransferase increased [None]

NARRATIVE: CASE EVENT DATE: 20130605
